FAERS Safety Report 18372577 (Version 1)
Quarter: 2020Q4

REPORT INFORMATION
  Report Type: Spontaneous
  Country: US (occurrence: US)
  Receive Date: 20201012
  Receipt Date: 20201012
  Transmission Date: 20210114
  Serious: Yes (Disabling, Other)
  Sender: FDA-Public Use
  Company Number: US-PURDUE-USA-2020-0169259

PATIENT
  Sex: Female

DRUGS (1)
  1. HYDROMORPHONE TABLETS [Suspect]
     Active Substance: HYDROMORPHONE
     Indication: PRODUCT USED FOR UNKNOWN INDICATION
     Dosage: UNK
     Route: 048

REACTIONS (10)
  - Wheelchair user [Unknown]
  - Illness [Unknown]
  - Drug dependence [Unknown]
  - Disability [Unknown]
  - Feeding disorder [Unknown]
  - Hypoaesthesia [Unknown]
  - Paraplegia [Unknown]
  - Agoraphobia [Unknown]
  - Insomnia [Unknown]
  - Dyspepsia [Unknown]
